FAERS Safety Report 8696386 (Version 2)
Quarter: 2013Q4

REPORT INFORMATION
  Report Type: Spontaneous
  Country: US (occurrence: US)
  Receive Date: 20120801
  Receipt Date: 20131031
  Transmission Date: 20140711
  Serious: No
  Sender: FDA-Public Use
  Company Number: US-009507513-2012SP026607

PATIENT
  Age: 20 Year
  Sex: Female
  Weight: 64.86 kg

DRUGS (1)
  1. NEXPLANON [Suspect]
     Indication: CONTRACEPTION
     Dosage: 68 MG, 3YEARS
     Route: 059
     Dates: start: 20120516

REACTIONS (6)
  - Grip strength decreased [Recovered/Resolved]
  - Pain in extremity [Recovered/Resolved]
  - Implant site bruising [Not Recovered/Not Resolved]
  - Implant site swelling [Not Recovered/Not Resolved]
  - Application site discharge [Not Recovered/Not Resolved]
  - Hypoaesthesia [Recovered/Resolved]
